FAERS Safety Report 15413832 (Version 1)
Quarter: 2018Q3

REPORT INFORMATION
  Report Type: Spontaneous
  Country: CO (occurrence: CO)
  Receive Date: 20180921
  Receipt Date: 20180921
  Transmission Date: 20181010
  Serious: Yes (Hospitalization)
  Sender: FDA-Public Use
  Company Number: CO-PFIZER INC-2018376391

PATIENT
  Age: 12 Year
  Sex: Female
  Weight: 34 kg

DRUGS (2)
  1. GENOTROPIN [Suspect]
     Active Substance: SOMATROPIN
     Dosage: 1.4 MG, DAILY
     Route: 058
     Dates: start: 2014
  2. GENOTROPIN [Suspect]
     Active Substance: SOMATROPIN
     Indication: GROWTH HORMONE DEFICIENCY
     Dosage: 1.4 MG, DAILY
     Route: 058
     Dates: start: 2013, end: 20180913

REACTIONS (6)
  - Pyrexia [Unknown]
  - Device occlusion [Unknown]
  - Diarrhoea [Unknown]
  - Drug dose omission [Unknown]
  - Injection site erythema [Unknown]
  - Needle issue [Unknown]

NARRATIVE: CASE EVENT DATE: 20180913
